FAERS Safety Report 5592187-2 (Version None)
Quarter: 2008Q1

REPORT INFORMATION
  Report Type: 
  Country: None (occurrence: None)
  Receive Date: 20080115
  Receipt Date: 20070831
  Transmission Date: 20080703
  Serious: No
  Sender: FDA-Public Use
  Company Number: US-ABBOTT-07P-163-0415608-00

PATIENT
  Sex: Male
  Weight: 79.45 kg

DRUGS (4)
  1. ADVICOR [Suspect]
     Indication: DRUG USE FOR UNKNOWN INDICATION
     Route: 048
     Dates: start: 20070801, end: 20070829
  2. ASPIRIN [Concomitant]
     Indication: PROPHYLAXIS
     Route: 048
  3. RABEPRAZOLE SODIUM [Concomitant]
     Indication: GASTRIC DISORDER
     Route: 048
  4. UNSPECIFIED MEDICATION [Concomitant]
     Indication: DRUG USE FOR UNKNOWN INDICATION

REACTIONS (1)
  - SKIN BURNING SENSATION [None]
